FAERS Safety Report 24646458 (Version 2)
Quarter: 2024Q4

REPORT INFORMATION
  Report Type: Report from Study
  Country: US (occurrence: US)
  Receive Date: 20241121
  Receipt Date: 20241202
  Transmission Date: 20250114
  Serious: Yes (Other)
  Sender: ROCHE
  Company Number: US-ROCHE-10000102038

PATIENT
  Age: 49 Year
  Sex: Female
  Weight: 125.19 kg

DRUGS (5)
  1. KADCYLA [Suspect]
     Active Substance: ADO-TRASTUZUMAB EMTANSINE
     Indication: Breast cancer
     Route: 042
     Dates: start: 202405, end: 202406
  2. HERCEPTIN [Suspect]
     Active Substance: TRASTUZUMAB
     Indication: Product used for unknown indication
     Route: 065
  3. PERJETA [Suspect]
     Active Substance: PERTUZUMAB
     Indication: Product used for unknown indication
     Route: 065
  4. LUPRON [Concomitant]
     Active Substance: LEUPROLIDE ACETATE
     Indication: Neoplasm malignant
     Dosage: GIVEN IN ^BUTT^ AT THE OFFICE
     Route: 065
     Dates: start: 2019
  5. LETROZOLE [Concomitant]
     Active Substance: LETROZOLE
     Indication: Neoplasm malignant
     Route: 048
     Dates: start: 2019

REACTIONS (32)
  - Rash [Recovering/Resolving]
  - Pain [Recovering/Resolving]
  - Metastatic neoplasm [Recovering/Resolving]
  - Skin exfoliation [Not Recovered/Not Resolved]
  - Skin weeping [Not Recovered/Not Resolved]
  - Oncologic complication [Unknown]
  - Emotional distress [Unknown]
  - Fatigue [Unknown]
  - Peripheral swelling [Unknown]
  - Cough [Unknown]
  - Red blood cell count decreased [Unknown]
  - Haemoglobin decreased [Unknown]
  - Haematocrit decreased [Unknown]
  - Mean cell haemoglobin decreased [Unknown]
  - Mean cell haemoglobin concentration decreased [Unknown]
  - Red cell distribution width increased [Unknown]
  - Mean platelet volume decreased [Unknown]
  - Blood albumin decreased [Unknown]
  - Globulins increased [Unknown]
  - Albumin globulin ratio decreased [Unknown]
  - Aspartate aminotransferase increased [Unknown]
  - Malignant lymphoid neoplasm [Unknown]
  - Metastases to skin [Unknown]
  - Dehydration [Unknown]
  - Dysuria [Unknown]
  - Postmastectomy lymphoedema syndrome [Unknown]
  - Chest pain [Unknown]
  - Urinary tract infection [Unknown]
  - Neoplasm [Unknown]
  - Dyspnoea [Unknown]
  - Ill-defined disorder [Unknown]
  - Drug ineffective [Unknown]

NARRATIVE: CASE EVENT DATE: 20240701
